FAERS Safety Report 9494923 (Version 3)
Quarter: 2013Q4

REPORT INFORMATION
  Report Type: Spontaneous
  Country: GB (occurrence: None)
  Receive Date: 20130828
  Receipt Date: 20131002
  Transmission Date: 20140711
  Serious: Yes (Other)
  Sender: FDA-Public Use
  Company Number: AUR-APL-2013-06954

PATIENT
  Age: 3 Decade
  Sex: Female

DRUGS (2)
  1. CITALOPRAM [Suspect]
     Indication: PHOBIA
     Dosage: (20 MG, 1 D) UNKNOWN
     Dates: start: 2005, end: 2009
  2. CITALOPRAM [Suspect]
     Indication: DEPRESSION
     Dosage: (20 MG, 1 D) UNKNOWN
     Dates: start: 2005, end: 2009

REACTIONS (18)
  - Alcoholism [None]
  - Anxiety [None]
  - Disinhibition [None]
  - Psychomotor hyperactivity [None]
  - Memory impairment [None]
  - Loss of employment [None]
  - Panic attack [None]
  - Pneumonia [None]
  - Choking [None]
  - Phobia [None]
  - Disturbance in attention [None]
  - Depression [None]
  - Aggression [None]
  - Indifference [None]
  - Impulsive behaviour [None]
  - Logorrhoea [None]
  - Alcohol interaction [None]
  - Hypomania [None]
